FAERS Safety Report 4970767-2 (Version None)
Quarter: 2006Q2

REPORT INFORMATION
  Report Type: 
  Country: None (occurrence: None)
  Receive Date: 20060406
  Receipt Date: 20060315
  Transmission Date: 20061013
  Serious: Yes (Hospitalization)
  Sender: FDA-Public Use
  Company Number: JP200603004473

PATIENT
  Age: 77 Year
  Sex: Female
  Weight: 55 kg

DRUGS (3)
  1. RALOXIFENE HCL [Suspect]
     Indication: OSTEOPOROSIS POSTMENOPAUSAL
     Dosage: 60 MG, DAILY (1/D), ORAL
     Route: 048
     Dates: start: 20050216
  2. LIPITOR [Concomitant]
  3. AMLODIPINE BESYLATE [Concomitant]

REACTIONS (3)
  - GASTRITIS [None]
  - PERITONEAL CARCINOMA [None]
  - RECURRENT CANCER [None]
